FAERS Safety Report 9704996 (Version 2)
Quarter: 2013Q4

REPORT INFORMATION
  Report Type: Spontaneous
  Country: US (occurrence: US)
  Receive Date: 20131122
  Receipt Date: 20131122
  Transmission Date: 20140711
  Serious: No
  Sender: FDA-Public Use
  Company Number: US-ABBVIE-13P-163-1127149-00

PATIENT
  Age: 50 Year
  Sex: Male
  Weight: 95.79 kg

DRUGS (6)
  1. ANDROGEL [Suspect]
     Indication: BLOOD TESTOSTERONE DECREASED
     Dosage: TWO PUMPS
     Dates: start: 20130719, end: 20130724
  2. UNKNOWN STEROID CREAM [Suspect]
     Indication: APPLICATION SITE PRURITUS
     Dates: start: 201307
  3. UNKNOWN STEROID CREAM [Suspect]
     Indication: APPLICATION SITE PAIN
  4. UNKNOWN STEROID CREAM [Suspect]
     Indication: APPLICATION SITE RASH
  5. METFORMIN [Concomitant]
     Indication: DIABETES MELLITUS
  6. ASPIRIN [Concomitant]
     Indication: PRODUCT USED FOR UNKNOWN INDICATION

REACTIONS (4)
  - Application site pain [Recovering/Resolving]
  - Application site pruritus [Recovering/Resolving]
  - Application site rash [Recovering/Resolving]
  - Rash [Recovering/Resolving]
